FAERS Safety Report 23952725 (Version 7)
Quarter: 2025Q3

REPORT INFORMATION
  Report Type: Report from Study
  Country: US (occurrence: US)
  Receive Date: 20240607
  Receipt Date: 20250929
  Transmission Date: 20251020
  Serious: Yes (Hospitalization, Other)
  Sender: JAZZ
  Company Number: US-JAZZ PHARMACEUTICALS-2024-US-004391

PATIENT
  Age: 61 Year
  Sex: Male

DRUGS (20)
  1. SODIUM OXYBATE [Suspect]
     Active Substance: SODIUM OXYBATE
     Indication: Narcolepsy
     Dosage: 4.5 GRAM, QD
  2. SODIUM OXYBATE [Suspect]
     Active Substance: SODIUM OXYBATE
     Indication: Cataplexy
     Dosage: 4.5 GRAM, BID
     Dates: start: 20240610, end: 20240616
  3. SODIUM OXYBATE [Suspect]
     Active Substance: SODIUM OXYBATE
     Indication: Somnolence
  4. TAMSULOSIN [Suspect]
     Active Substance: TAMSULOSIN
     Indication: Product used for unknown indication
  5. TESTOSTERONE CYPIONATE [Concomitant]
     Active Substance: TESTOSTERONE CYPIONATE
     Indication: Hypogonadism
  6. ZINC [Concomitant]
     Active Substance: ZINC
     Indication: Dermatitis
  7. ROSUVASTATIN [Concomitant]
     Active Substance: ROSUVASTATIN
     Indication: Product used for unknown indication
  8. ROSUVASTATIN [Concomitant]
     Active Substance: ROSUVASTATIN
  9. LISINOPRIL [Concomitant]
     Active Substance: LISINOPRIL
     Indication: Product used for unknown indication
  10. OMEPRAZOLE [Concomitant]
     Active Substance: OMEPRAZOLE
     Indication: Product used for unknown indication
  11. TADALAFIL [Concomitant]
     Active Substance: TADALAFIL
     Indication: Product used for unknown indication
  12. LEXAPRO [Concomitant]
     Active Substance: ESCITALOPRAM OXALATE
     Indication: Product used for unknown indication
  13. HYDRALAZINE [Concomitant]
     Active Substance: HYDRALAZINE HYDROCHLORIDE
     Indication: Hypersensitivity
     Dosage: 25 MILLIGRAM, QD
  14. ZEPBOUND [Concomitant]
     Active Substance: TIRZEPATIDE
     Indication: Product used for unknown indication
  15. ARMODAFINIL [Concomitant]
     Active Substance: ARMODAFINIL
     Indication: Product used for unknown indication
  16. WAKIX [Concomitant]
     Active Substance: PITOLISANT HYDROCHLORIDE
     Indication: Product used for unknown indication
  17. NUVIGIL [Concomitant]
     Active Substance: ARMODAFINIL
     Indication: Product used for unknown indication
  18. ACYCLOVIR [Concomitant]
     Active Substance: ACYCLOVIR
     Indication: Product used for unknown indication
  19. FLUOCINONIDE [Concomitant]
     Active Substance: FLUOCINONIDE
     Indication: Product used for unknown indication
  20. PYRITHIONE ZINC [Concomitant]
     Active Substance: PYRITHIONE ZINC
     Indication: Dermatitis

REACTIONS (35)
  - Acute kidney injury [Recovered/Resolved]
  - Diarrhoea [Unknown]
  - Vitamin D decreased [Unknown]
  - Depressed level of consciousness [Unknown]
  - Autoimmune disorder [Unknown]
  - Hypoxia [Unknown]
  - Acute respiratory failure [Unknown]
  - Hyperkalaemia [Recovered/Resolved]
  - Cataract [Unknown]
  - Blood glucose increased [Unknown]
  - Somnambulism [Recovered/Resolved]
  - Onychomycosis [Unknown]
  - Malaise [Unknown]
  - Moaning [Unknown]
  - Normocytic anaemia [Unknown]
  - Cardiomegaly [Unknown]
  - Dyspnoea [Unknown]
  - Micturition urgency [Unknown]
  - Metabolic alkalosis [Unknown]
  - Oedema peripheral [Unknown]
  - Lipase increased [Unknown]
  - Sinus tachycardia [Unknown]
  - Palpitations [Unknown]
  - Hypertension [Unknown]
  - Headache [Unknown]
  - Hypersensitivity [Unknown]
  - Dizziness postural [Unknown]
  - Vision blurred [Unknown]
  - Dehydration [Unknown]
  - Blood testosterone abnormal [Unknown]
  - Eye pruritus [Unknown]
  - Nasal congestion [Unknown]
  - Anaemia [Unknown]
  - COVID-19 [Unknown]
  - Therapeutic product effect decreased [Unknown]

NARRATIVE: CASE EVENT DATE: 20240101
